FAERS Safety Report 8862493 (Version 1)
Quarter: 2012Q4

REPORT INFORMATION
  Report Type: 
  Country: US (occurrence: US)
  Receive Date: 20121026
  Receipt Date: 20121026
  Transmission Date: 20130627
  Serious: No
  Sender: FDA-Public Use
  Company Number: US-ALLERGAN-1213133US

PATIENT
  Sex: Female

DRUGS (3)
  1. ALPHAGAN [Suspect]
     Indication: DRY EYE
     Dosage: 1 Gtt, UNK
     Route: 047
  2. TOPROL [Concomitant]
     Indication: HYPERTENSION
     Dosage: 5 mg, qd
     Route: 048
  3. WATER PILL [Concomitant]
     Indication: DRUG USE FOR UNKNOWN INDICATION
     Dosage: UNK
     Route: 048

REACTIONS (2)
  - Lacrimation increased [Unknown]
  - Eye pain [Unknown]
